FAERS Safety Report 6794799-7 (Version None)
Quarter: 2010Q2

REPORT INFORMATION
  Report Type: 
  Country: None (occurrence: None)
  Receive Date: 20100625
  Receipt Date: 20100623
  Transmission Date: 20101027
  Serious: Yes (Hospitalization)
  Sender: FDA-Public Use
  Company Number: IT-BRISTOL-MYERS SQUIBB COMPANY-15138035

PATIENT
  Age: 87 Year
  Sex: Female

DRUGS (7)
  1. COUMADIN [Suspect]
     Indication: PROPHYLAXIS
     Route: 048
     Dates: start: 20090101, end: 20100507
  2. ATENOLOL [Concomitant]
  3. OMEPRAZOLE [Concomitant]
  4. LASIX [Concomitant]
     Dosage: LASIX 25MG TABS
  5. NITRODERM [Concomitant]
     Dosage: TRANSDERMIC PATCH
     Route: 062
  6. KCL RETARD [Concomitant]
  7. SERENASE [Concomitant]

REACTIONS (3)
  - FALL [None]
  - HAEMATOMA [None]
  - INTERNATIONAL NORMALISED RATIO INCREASED [None]
